FAERS Safety Report 4855164-2 (Version None)
Quarter: 2005Q4

REPORT INFORMATION
  Report Type: 
  Country: None (occurrence: None)
  Receive Date: 20051215
  Receipt Date: 20050517
  Transmission Date: 20060501
  Serious: Yes (Hospitalization, Disabling, Other)
  Sender: FDA-Public Use
  Company Number: US-MERCK-0505USA02132

PATIENT
  Age: 56 Year
  Sex: Female
  Weight: 73 kg

DRUGS (1)
  1. VIOXX [Suspect]
     Indication: ARTHRALGIA
     Route: 048
     Dates: start: 20010101, end: 20030101

REACTIONS (25)
  - CARDIAC FLUTTER [None]
  - CARDIOMEGALY [None]
  - CEREBROVASCULAR ACCIDENT [None]
  - DIPLOPIA [None]
  - HEADACHE [None]
  - HEMIPARESIS [None]
  - HYPERTENSION [None]
  - HYPERTENSIVE CARDIOMYOPATHY [None]
  - HYPERTENSIVE HEART DISEASE [None]
  - INJURY [None]
  - JOINT DISLOCATION [None]
  - JOINT STIFFNESS [None]
  - LABORATORY TEST INTERFERENCE [None]
  - MITRAL VALVE INCOMPETENCE [None]
  - MYOCARDIAL ISCHAEMIA [None]
  - NON-CARDIAC CHEST PAIN [None]
  - PAIN [None]
  - PHARYNGITIS [None]
  - RHEUMATOID ARTHRITIS [None]
  - SICK SINUS SYNDROME [None]
  - SINUSITIS [None]
  - TEMPOROMANDIBULAR JOINT SYNDROME [None]
  - VENTRICULAR DYSFUNCTION [None]
  - VISION BLURRED [None]
  - WEIGHT DECREASED [None]
